FAERS Safety Report 23542594 (Version 1)
Quarter: 2024Q1

REPORT INFORMATION
  Report Type: Spontaneous
  Country: JP (occurrence: JP)
  Receive Date: 20240220
  Receipt Date: 20240220
  Transmission Date: 20240410
  Serious: Yes (Hospitalization, Other)
  Sender: FDA-Public Use
  Company Number: JP-BRISTOL-MYERS SQUIBB COMPANY-2024-025776

PATIENT
  Age: 82 Year
  Sex: Male

DRUGS (4)
  1. ELIQUIS [Suspect]
     Active Substance: APIXABAN
     Indication: Atrial fibrillation
     Dates: end: 20240123
  2. ELIQUIS [Suspect]
     Active Substance: APIXABAN
     Dates: end: 202402
  3. ELIQUIS [Suspect]
     Active Substance: APIXABAN
  4. CALONAL [Concomitant]
     Active Substance: ACETAMINOPHEN
     Indication: Product used for unknown indication

REACTIONS (3)
  - Duodenal ulcer haemorrhage [Recovered/Resolved]
  - Humerus fracture [Unknown]
  - Stress [Unknown]

NARRATIVE: CASE EVENT DATE: 20240115
